FAERS Safety Report 5951819-7 (Version None)
Quarter: 2008Q4

REPORT INFORMATION
  Report Type: 
  Country: None (occurrence: None)
  Receive Date: 20081113
  Receipt Date: 20081107
  Transmission Date: 20090506
  Serious: Yes (Hospitalization)
  Sender: FDA-Public Use
  Company Number: B0535428A

PATIENT
  Age: 70 Year
  Sex: Female

DRUGS (14)
  1. PAXIL [Suspect]
     Indication: DEPRESSION
     Dosage: 10MG PER DAY
     Route: 048
     Dates: start: 20080704, end: 20080101
  2. PAXIL [Suspect]
     Route: 048
     Dates: start: 20080101, end: 20080806
  3. PAXIL [Suspect]
     Dosage: 30MG PER DAY
     Route: 048
     Dates: start: 20080807, end: 20080819
  4. PAXIL [Suspect]
     Dosage: 20MG PER DAY
     Route: 048
     Dates: start: 20080820, end: 20080826
  5. PAXIL [Suspect]
     Dosage: 10MG PER DAY
     Route: 048
     Dates: start: 20080827, end: 20080902
  6. PAXIL [Suspect]
     Dosage: 10MG PER DAY
     Route: 048
     Dates: start: 20080903, end: 20080908
  7. PROTHIADEN [Suspect]
     Indication: DEPRESSION
     Dosage: 50MG PER DAY
     Route: 048
     Dates: start: 20080812, end: 20080819
  8. VOLTAREN [Concomitant]
     Indication: CANCER PAIN
     Dosage: 75MG PER DAY
     Route: 048
     Dates: start: 20080606
  9. UNKNOWN DRUG [Concomitant]
     Indication: GASTRIC ULCER
     Dosage: 20MG PER DAY
     Route: 048
     Dates: start: 20080606
  10. MAGMITT [Concomitant]
     Indication: CONSTIPATION
     Dosage: 990MG PER DAY
     Route: 048
     Dates: start: 20080606
  11. TRYPTANOL [Concomitant]
     Indication: DEPRESSION
     Dosage: 10MG PER DAY
     Route: 048
  12. FENTANYL CITRATE [Concomitant]
     Indication: PAIN
     Dosage: 3.75MG PER DAY
     Route: 062
     Dates: start: 20080617, end: 20080811
  13. FENTANYL CITRATE [Concomitant]
     Dosage: 5MG PER DAY
     Route: 062
     Dates: start: 20080812
  14. OXYCONTIN [Concomitant]
     Indication: DRUG USE FOR UNKNOWN INDICATION
     Route: 065

REACTIONS (4)
  - DELIRIUM [None]
  - HYPONATRAEMIA [None]
  - INAPPROPRIATE ANTIDIURETIC HORMONE SECRETION [None]
  - SOLILOQUY [None]
